FAERS Safety Report 15599126 (Version 1)
Quarter: 2018Q4

REPORT INFORMATION
  Report Type: Spontaneous
  Country: US (occurrence: US)
  Receive Date: 20181108
  Receipt Date: 20181108
  Transmission Date: 20190205
  Serious: No
  Sender: FDA-Public Use
  Company Number: US-B.I. PHARMACEUTICALS,INC./RIDGEFIELD-2018-BI-053137

PATIENT
  Age: 66 Year
  Sex: Female

DRUGS (5)
  1. HUMULIN NOS [Concomitant]
     Active Substance: INSULIN HUMAN
     Indication: TYPE 2 DIABETES MELLITUS
     Route: 065
  2. SYNJARDY [Suspect]
     Active Substance: EMPAGLIFLOZIN\METFORMIN HYDROCHLORIDE
     Indication: TYPE 2 DIABETES MELLITUS
     Dosage: ONE TABLET TWICE;  FORM STRENGTH: 12.5 MG / 1000 MG; FORMULATION: TABLET
     Route: 065
     Dates: start: 201804
  3. VASERETIC [Concomitant]
     Active Substance: ENALAPRIL MALEATE\HYDROCHLOROTHIAZIDE
     Indication: HYPERTENSION
     Dosage: ONE CAPLET DAILY;  FORM STRENGTH: 10/25MG; FORMULATION: CAPLET
     Route: 048
  4. SIMVASTATIN. [Concomitant]
     Active Substance: SIMVASTATIN
     Indication: BLOOD CHOLESTEROL INCREASED
     Dosage: ONE CAPLET DAILY;  FORM STRENGTH: 40MG; FORMULATION: CAPLET
     Route: 048
  5. LEVOTHYROXINE. [Concomitant]
     Active Substance: LEVOTHYROXINE
     Indication: HYPOTHYROIDISM
     Dosage: ONE CAPLET DAILY;  FORM STRENGTH: 1.25MCG; FORMULATION: CAPLET
     Route: 048

REACTIONS (3)
  - Urinary tract infection [Recovered/Resolved]
  - Urinary incontinence [Unknown]
  - Weight decreased [Unknown]

NARRATIVE: CASE EVENT DATE: 201804
